FAERS Safety Report 21374693 (Version 1)
Quarter: 2022Q3

REPORT INFORMATION
  Report Type: Spontaneous
  Country: US (occurrence: US)
  Receive Date: 20220926
  Receipt Date: 20220926
  Transmission Date: 20221026
  Serious: No
  Sender: FDA-Public Use
  Company Number: US-ALLERGAN-2132841US

PATIENT
  Sex: Male

DRUGS (4)
  1. LEXAPRO [Suspect]
     Active Substance: ESCITALOPRAM OXALATE
     Indication: Depression
     Dosage: 20 MG, QD
     Route: 048
     Dates: start: 2007, end: 202108
  2. DUPIXENT [Suspect]
     Active Substance: DUPILUMAB
     Indication: Dermatitis atopic
     Dosage: 300 MG, Q2WEEKS
     Route: 058
  3. DUPIXENT [Suspect]
     Active Substance: DUPILUMAB
     Dosage: 600 MG, SINGLE
     Route: 058
     Dates: start: 20190808, end: 20190808
  4. OLANZAPINE [Suspect]
     Active Substance: OLANZAPINE
     Indication: Affective disorder
     Dosage: 5 MG, QD
     Route: 048
     Dates: start: 2007, end: 20201123

REACTIONS (4)
  - Blood glucose increased [Not Recovered/Not Resolved]
  - Sjogren^s syndrome [Not Recovered/Not Resolved]
  - Dry mouth [Not Recovered/Not Resolved]
  - Drug ineffective [Unknown]

NARRATIVE: CASE EVENT DATE: 20110101
